FAERS Safety Report 17053881 (Version 1)
Quarter: 2019Q4

REPORT INFORMATION
  Report Type: Spontaneous
  Country: SE (occurrence: SE)
  Receive Date: 20191120
  Receipt Date: 20191120
  Transmission Date: 20200122
  Serious: Yes (Hospitalization, Other)
  Sender: FDA-Public Use
  Company Number: SE-SA-2019SA316724

PATIENT
  Age: 46 Year
  Sex: Female

DRUGS (4)
  1. PROMETHAZINE HYDROCHLORIDE. [Suspect]
     Active Substance: PROMETHAZINE HYDROCHLORIDE
     Dosage: UNK UNK, UNK
     Route: 048
     Dates: start: 201806, end: 201806
  2. STILNOCT [Suspect]
     Active Substance: ZOLPIDEM TARTRATE
     Dosage: UNK UNK, UNK
     Route: 048
     Dates: start: 201806, end: 201806
  3. PROPAVAN [Suspect]
     Active Substance: PROPIOMAZINE
     Dosage: UNK UNK, UNK
     Route: 048
     Dates: start: 201806, end: 201806
  4. IMOVANE [Suspect]
     Active Substance: ZOPICLONE
     Dosage: UNK UNK, UNK
     Route: 048
     Dates: start: 201806, end: 201806

REACTIONS (4)
  - Depressed level of consciousness [Unknown]
  - Tachycardia [Unknown]
  - Intentional overdose [Unknown]
  - Intentional self-injury [Unknown]

NARRATIVE: CASE EVENT DATE: 201806
